FAERS Safety Report 22935180 (Version 2)
Quarter: 2023Q4

REPORT INFORMATION
  Report Type: Spontaneous
  Country: US (occurrence: None)
  Receive Date: 20230912
  Receipt Date: 20231004
  Transmission Date: 20240109
  Serious: No
  Sender: FDA-Public Use
  Company Number: US-Eisai Medical Research-EC-2023-145076

PATIENT
  Age: 75 Year
  Sex: Female

DRUGS (3)
  1. LEQEMBI [Suspect]
     Active Substance: LECANEMAB-IRMB
     Indication: Product used for unknown indication
     Dosage: DOSE UNKNOWN
     Route: 042
     Dates: start: 20230714
  2. ARICEPT [Concomitant]
     Active Substance: DONEPEZIL HYDROCHLORIDE
     Route: 048
  3. MEMANTINE [Concomitant]
     Active Substance: MEMANTINE

REACTIONS (7)
  - Confusional state [Unknown]
  - Urinary incontinence [Recovered/Resolved]
  - Rash papular [Recovered/Resolved]
  - Delusional perception [Unknown]
  - Fatigue [Unknown]
  - Infusion related reaction [Unknown]
  - Cognitive disorder [Not Recovered/Not Resolved]

NARRATIVE: CASE EVENT DATE: 20230101
